FAERS Safety Report 18547763 (Version 4)
Quarter: 2021Q2

REPORT INFORMATION
  Report Type: Report from Study
  Country: CN (occurrence: CN)
  Receive Date: 20201126
  Receipt Date: 20210531
  Transmission Date: 20210717
  Serious: Yes (Hospitalization)
  Sender: FDA-Public Use
  Company Number: CN-ROCHE-2715997

PATIENT
  Age: 35 Year
  Sex: Female
  Weight: 52 kg

DRUGS (3)
  1. DOCETAXEL. [Suspect]
     Active Substance: DOCETAXEL
     Indication: HER2 POSITIVE BREAST CANCER
     Dosage: IVGTT ON D1
     Route: 065
  2. BLINDED PYROTINIB MALEATE/PLACEBO [Suspect]
     Active Substance: PYROTINIB MALEATE
     Indication: HER2 POSITIVE BREAST CANCER
     Dosage: THE LAST DOSE OF BLINDED PYROTINIB MALEATE WAS GIVEN ON 02/NOV/2020
     Route: 048
     Dates: start: 20201015
  3. TRASTUZUMAB. [Suspect]
     Active Substance: TRASTUZUMAB
     Indication: HER2 POSITIVE BREAST CANCER
     Dosage: IVGTT ON D1
     Route: 041

REACTIONS (1)
  - Liver injury [Recovered/Resolved with Sequelae]

NARRATIVE: CASE EVENT DATE: 20201102
